FAERS Safety Report 16822972 (Version 1)
Quarter: 2019Q3

REPORT INFORMATION
  Report Type: Spontaneous
  Country: US (occurrence: US)
  Receive Date: 20190918
  Receipt Date: 20190918
  Transmission Date: 20191005
  Serious: No
  Sender: FDA-Public Use
  Company Number: US-ASTRAZENECA-2019SF20318

PATIENT
  Age: 24167 Day
  Sex: Female

DRUGS (3)
  1. BYDUREON [Suspect]
     Active Substance: EXENATIDE
     Indication: GLYCOSYLATED HAEMOGLOBIN INCREASED
     Dosage: 2.0MG UNKNOWN
     Route: 065
  2. BYDUREON BCISE [Suspect]
     Active Substance: EXENATIDE
     Indication: GLYCOSYLATED HAEMOGLOBIN INCREASED
     Dosage: 2.0MG UNKNOWN
     Route: 065
     Dates: start: 201908
  3. BYDUREON BCISE [Suspect]
     Active Substance: EXENATIDE
     Indication: GLYCOSYLATED HAEMOGLOBIN INCREASED
     Dosage: 2.0MG UNKNOWN
     Route: 065

REACTIONS (13)
  - Glycosylated haemoglobin increased [Recovered/Resolved]
  - Blood cholesterol increased [Unknown]
  - Fatigue [Recovering/Resolving]
  - Gastrooesophageal sphincter insufficiency [Not Recovered/Not Resolved]
  - Device issue [Unknown]
  - Hypoaesthesia [Recovering/Resolving]
  - Blood triglycerides increased [Unknown]
  - Discomfort [Not Recovered/Not Resolved]
  - Gastrooesophageal reflux disease [Not Recovered/Not Resolved]
  - Dyspepsia [Not Recovered/Not Resolved]
  - Headache [Recovering/Resolving]
  - Paraesthesia [Recovering/Resolving]
  - Abdominal discomfort [Not Recovered/Not Resolved]

NARRATIVE: CASE EVENT DATE: 201810
